FAERS Safety Report 20715509 (Version 1)
Quarter: 2022Q2

REPORT INFORMATION
  Report Type: Spontaneous
  Country: US (occurrence: US)
  Receive Date: 20220415
  Receipt Date: 20220415
  Transmission Date: 20220721
  Serious: No
  Sender: FDA-Public Use
  Company Number: US-BAUSCH-BL-2022-008862

PATIENT
  Sex: Male

DRUGS (1)
  1. DORZOLAMIDE HYDROCHLORIDE\TIMOLOL MALEATE [Suspect]
     Active Substance: DORZOLAMIDE HYDROCHLORIDE\TIMOLOL MALEATE
     Indication: Intraocular pressure test abnormal
     Dosage: 1 DROP IN HIS LEFT EYE ONCE IN THE MORNING AND ONCE IN THE EVENING
     Route: 047
     Dates: start: 20220407

REACTIONS (2)
  - Instillation site discolouration [Unknown]
  - Instillation site pain [Recovered/Resolved]

NARRATIVE: CASE EVENT DATE: 20220407
